FAERS Safety Report 9741834 (Version 4)
Quarter: 2014Q1

REPORT INFORMATION
  Report Type: Report from Study
  Country: US (occurrence: US)
  Receive Date: 20131210
  Receipt Date: 20140326
  Transmission Date: 20141002
  Serious: Yes (Hospitalization, Other)
  Sender: FDA-Public Use
  Company Number: PHEH2013US025327

PATIENT
  Sex: Female

DRUGS (15)
  1. NEORAL [Suspect]
     Indication: LIVER TRANSPLANT
     Dosage: 100 MG, BID
     Route: 048
  2. COUMADIN [Suspect]
     Dosage: UNK UKN, UNK
  3. LOVENOX [Suspect]
     Dosage: UNK UKN, UNK
  4. PREDNISONE [Concomitant]
     Indication: LIVER TRANSPLANT
     Dosage: 5 MG, QD
  5. LISINOPRIL [Concomitant]
     Indication: HYPERTENSION
     Dosage: 40 MG, BID
  6. CLONIDINE [Concomitant]
     Indication: HYPERTENSION
     Dosage: 0.1 MG, BID
  7. LEVOTHYROXINE [Concomitant]
     Indication: HYPOTHYROIDISM
     Dosage: 50 MG, QD
  8. ULORIC [Concomitant]
     Indication: GOUT
     Dosage: 40 MG, QD
  9. DIAZEPAM [Concomitant]
     Indication: MUSCLE SPASMS
     Dosage: 5 MG, TID
  10. ACYCLOVIR [Concomitant]
     Indication: HERPES VIRUS INFECTION
     Dosage: 400 MG, TID
  11. ZOLPIDEM [Concomitant]
     Indication: INSOMNIA
     Dosage: 10 MG, AT BEDTIME
  12. ZYRTEC [Concomitant]
     Indication: HYPERSENSITIVITY
     Dosage: 10 MG, QD
  13. VITAMIN D3 [Concomitant]
     Dosage: 5000 IU, QD
  14. WARFARIN [Concomitant]
     Dosage: 10 MG, TWICE WEEKLY
  15. WARFARIN [Concomitant]
     Dosage: 12.5 MG, 5 DAYS A WEEK

REACTIONS (5)
  - Pulmonary embolism [Unknown]
  - Intra-abdominal haematoma [Unknown]
  - Pancreatitis chronic [Unknown]
  - Malaise [Unknown]
  - Haemorrhage [Unknown]
